FAERS Safety Report 5668493-X (Version None)
Quarter: 2008Q1

REPORT INFORMATION
  Report Type: 
  Country: None (occurrence: None)
  Receive Date: 20080315
  Receipt Date: 20080221
  Transmission Date: 20080703
  Serious: No
  Sender: FDA-Public Use
  Company Number: US-ABBOTT-08P-163-0439474-00

PATIENT
  Sex: Female
  Weight: 59.02 kg

DRUGS (4)
  1. HUMIRA [Suspect]
     Indication: RHEUMATOID ARTHRITIS
     Route: 058
     Dates: start: 20071001
  2. ESCITALOPRAM OXALATE [Concomitant]
     Indication: ANXIETY
     Route: 048
  3. ALPRAZOLAM [Concomitant]
     Indication: ANXIETY
     Route: 048
  4. ZOLPIDEM TARTRATE [Concomitant]
     Indication: INSOMNIA
     Route: 048

REACTIONS (1)
  - ACCIDENTAL EXPOSURE [None]
